FAERS Safety Report 8884902 (Version 3)
Quarter: 2013Q1

REPORT INFORMATION
  Report Type: Spontaneous
  Country: US (occurrence: US)
  Receive Date: 20121105
  Receipt Date: 20130329
  Transmission Date: 20140127
  Serious: No
  Sender: FDA-Public Use
  Company Number: US-009507513-1208USA004788

PATIENT
  Age: 25 Year
  Sex: Female

DRUGS (1)
  1. IMPLANON [Suspect]
     Indication: CONTRACEPTION
     Dosage: EVERY THREE YEAR
     Route: 059
     Dates: start: 20100922, end: 20120530

REACTIONS (3)
  - Metrorrhagia [Unknown]
  - Device breakage [Unknown]
  - Medical device complication [Unknown]
